FAERS Safety Report 9637880 (Version 1)
Quarter: 2013Q4

REPORT INFORMATION
  Report Type: Spontaneous
  Country: US (occurrence: None)
  Receive Date: 20131018
  Receipt Date: 20131018
  Transmission Date: 20140711
  Serious: Yes (Life-Threatening, Hospitalization)
  Sender: FDA-Public Use
  Company Number: 2013AP009003

PATIENT
  Age: 21 Year
  Sex: Male

DRUGS (3)
  1. CITALOPRAM [Suspect]
     Route: 048
  2. OLANZAPINE [Suspect]
     Route: 048
  3. CLONAZEPAM [Suspect]
     Route: 048

REACTIONS (7)
  - Overdose [None]
  - Cardiotoxicity [None]
  - Convulsion [None]
  - Unresponsive to stimuli [None]
  - Hypotension [None]
  - Bradycardia [None]
  - Pneumonia aspiration [None]
